FAERS Safety Report 6209380-8 (Version None)
Quarter: 2009Q2

REPORT INFORMATION
  Report Type: 
  Country: None (occurrence: None)
  Receive Date: 20090529
  Receipt Date: 20090521
  Transmission Date: 20091009
  Serious: Yes (Other)
  Sender: FDA-Public Use
  Company Number: PHEH2009US05188

PATIENT
  Age: 12 Year
  Sex: Male

DRUGS (2)
  1. RITALIN [Suspect]
  2. RITALIN LA [Suspect]

REACTIONS (2)
  - DIARRHOEA [None]
  - INCORRECT ROUTE OF DRUG ADMINISTRATION [None]
